FAERS Safety Report 10309166 (Version 1)
Quarter: 2014Q3

REPORT INFORMATION
  Report Type: Spontaneous
  Country: SG (occurrence: SG)
  Receive Date: 20140716
  Receipt Date: 20140716
  Transmission Date: 20150326
  Serious: Yes (Hospitalization)
  Sender: FDA-Public Use
  Company Number: SG-BAUSCH-BL-2014-003224

PATIENT
  Age: 6 Year
  Sex: Male

DRUGS (4)
  1. TROPICAMIDE 0.5% [Suspect]
     Active Substance: TROPICAMIDE
     Indication: CYCLOPLEGIC REFRACTION
     Route: 047
  2. PROXYMETACAINE HYDROCHLORIDE [Suspect]
     Active Substance: PROPARACAINE HYDROCHLORIDE
     Indication: CYCLOPLEGIC REFRACTION
     Route: 047
  3. PHENYLEPHRINE [Suspect]
     Active Substance: PHENYLEPHRINE\PHENYLEPHRINE HYDROCHLORIDE
     Indication: CYCLOPLEGIC REFRACTION
     Route: 047
  4. CYCLOPENTOLATE 1% [Suspect]
     Active Substance: CYCLOPENTOLATE
     Indication: CYCLOPLEGIC REFRACTION
     Route: 047

REACTIONS (1)
  - Generalised tonic-clonic seizure [Unknown]
